FAERS Safety Report 18223742 (Version 5)
Quarter: 2022Q1

REPORT INFORMATION
  Report Type: Report from Study
  Country: US (occurrence: US)
  Receive Date: 20200902
  Receipt Date: 20220226
  Transmission Date: 20220424
  Serious: No
  Sender: FDA-Public Use
  Company Number: NVSC2020US239270

PATIENT
  Sex: Female

DRUGS (3)
  1. COSENTYX [Suspect]
     Active Substance: SECUKINUMAB
     Indication: Ankylosing spondylitis
     Dosage: UNK
     Route: 065
  2. COSENTYX [Suspect]
     Active Substance: SECUKINUMAB
     Dosage: 150 MG, UNKNOWN
     Route: 065
  3. COSENTYX [Suspect]
     Active Substance: SECUKINUMAB
     Dosage: 1 DF, QMO (300MG/ML)
     Route: 065

REACTIONS (8)
  - Fatigue [Unknown]
  - Device issue [Unknown]
  - Accidental exposure to product [Unknown]
  - Device malfunction [Unknown]
  - Device leakage [Unknown]
  - Device defective [Unknown]
  - Injection site haemorrhage [Unknown]
  - Incorrect dose administered by device [Unknown]
